FAERS Safety Report 11114374 (Version 2)
Quarter: 2015Q2

REPORT INFORMATION
  Report Type: Report from Study
  Country: CA (occurrence: CA)
  Receive Date: 20150514
  Receipt Date: 20150525
  Transmission Date: 20150821
  Serious: Yes (Other)
  Sender: FDA-Public Use
  Company Number: CA-ROCHE-1439029

PATIENT
  Age: 54 Year
  Sex: Female
  Weight: 120 kg

DRUGS (10)
  1. PLAQUENIL [Concomitant]
     Active Substance: HYDROXYCHLOROQUINE SULFATE
  2. CLONAZEPAM. [Concomitant]
     Active Substance: CLONAZEPAM
  3. ATIVAN [Concomitant]
     Active Substance: LORAZEPAM
     Dosage: PRN
     Route: 065
  4. TYLENOL ARTHRITIS PAIN [Concomitant]
     Active Substance: ACETAMINOPHEN
  5. CIPROLEX [Concomitant]
     Active Substance: CIPROFLOXACIN HYDROCHLORIDE
  6. FOLIC ACID. [Concomitant]
     Active Substance: FOLIC ACID
  7. ACTEMRA [Suspect]
     Active Substance: TOCILIZUMAB
     Route: 042
  8. METHOTREXATE [Concomitant]
     Active Substance: METHOTREXATE
  9. ACTEMRA [Suspect]
     Active Substance: TOCILIZUMAB
     Indication: RHEUMATOID ARTHRITIS
     Route: 042
     Dates: start: 20140623
  10. SEROQUEL [Concomitant]
     Active Substance: QUETIAPINE FUMARATE

REACTIONS (7)
  - Uterine disorder [Unknown]
  - Wrong technique in drug usage process [Unknown]
  - Bronchitis [Not Recovered/Not Resolved]
  - Blood pressure increased [Unknown]
  - Uterine polyp [Unknown]
  - Infusion related reaction [Unknown]
  - Weight increased [Unknown]

NARRATIVE: CASE EVENT DATE: 20140721
